FAERS Safety Report 7789957-9 (Version None)
Quarter: 2011Q3

REPORT INFORMATION
  Report Type: 
  Country: None (occurrence: None)
  Receive Date: 20110930
  Receipt Date: 20110331
  Transmission Date: 20111222
  Serious: Yes (Other)
  Sender: FDA-Public Use
  Company Number: US-ASTRAZENECA-2011SE01322

PATIENT
  Age: 71 Year
  Sex: Female
  Weight: 72.6 kg

DRUGS (7)
  1. AREDIA [Concomitant]
  2. ANTACID [Concomitant]
  3. ARIMIDEX [Suspect]
     Indication: BREAST CANCER METASTATIC
     Route: 048
     Dates: start: 20100101, end: 20100101
  4. ARIMIDEX [Suspect]
     Dosage: GENERIC
     Route: 048
     Dates: start: 20100101, end: 20101001
  5. TAMOXIFEN CITRATE [Suspect]
     Route: 048
  6. FASLODEX [Suspect]
     Indication: BREAST CANCER
     Route: 030
     Dates: start: 20110101
  7. AMLODIPINE [Concomitant]
     Indication: HYPERTENSION

REACTIONS (12)
  - BACK PAIN [None]
  - ASTHENIA [None]
  - WRONG TECHNIQUE IN DRUG USAGE PROCESS [None]
  - NAUSEA [None]
  - FATIGUE [None]
  - HEADACHE [None]
  - HOT FLUSH [None]
  - INJECTION SITE PAIN [None]
  - BONE PAIN [None]
  - ARTHRALGIA [None]
  - NEOPLASM MALIGNANT [None]
  - TUMOUR MARKER INCREASED [None]
